FAERS Safety Report 5563919-4 (Version None)
Quarter: 2007Q4

REPORT INFORMATION
  Report Type: 
  Country: None (occurrence: None)
  Receive Date: 20071217
  Receipt Date: 20070924
  Transmission Date: 20080405
  Serious: No
  Sender: FDA-Public Use
  Company Number: US-ASTRAZENECA-2007UW22409

PATIENT
  Age: 71 Year
  Sex: Female
  Weight: 63.5 kg

DRUGS (4)
  1. CRESTOR [Suspect]
     Indication: BLOOD CHOLESTEROL INCREASED
     Route: 048
     Dates: start: 20070701
  2. COZAAR [Concomitant]
  3. ARIMIDEX [Concomitant]
     Route: 048
  4. BONIVA [Concomitant]

REACTIONS (2)
  - ABDOMINAL PAIN UPPER [None]
  - MICTURITION URGENCY [None]
